FAERS Safety Report 22053104 (Version 1)
Quarter: 2023Q1

REPORT INFORMATION
  Report Type: Spontaneous
  Country: DE (occurrence: DE)
  Receive Date: 20230302
  Receipt Date: 20230302
  Transmission Date: 20230417
  Serious: Yes (Other)
  Sender: FDA-Public Use
  Company Number: DE-ASTELLAS-2023US006883

PATIENT
  Sex: Female

DRUGS (2)
  1. PADCEV [Suspect]
     Active Substance: ENFORTUMAB VEDOTIN-EJFV
     Indication: Transitional cell carcinoma
     Dosage: UNK UNK, UNKNOWN FREQ.
     Route: 065
  2. PADCEV [Suspect]
     Active Substance: ENFORTUMAB VEDOTIN-EJFV
     Dosage: UNK UNK, UNKNOWN FREQ. (LAST DOSE OF 1ST CYCLE (DAY 15))
     Route: 065
     Dates: start: 202302

REACTIONS (3)
  - Neutropenia [Unknown]
  - Fatigue [Unknown]
  - Skin disorder [Unknown]

NARRATIVE: CASE EVENT DATE: 20230201
